FAERS Safety Report 10469814 (Version 1)
Quarter: 2014Q3

REPORT INFORMATION
  Report Type: Spontaneous
  Country: US (occurrence: None)
  Receive Date: 20140922
  Receipt Date: 20140922
  Transmission Date: 20150326
  Serious: Yes (Hospitalization, Disabling)
  Sender: FDA-Public Use
  Company Number: None

PATIENT
  Age: 48 Year
  Sex: Female

DRUGS (1)
  1. KENALOG [Suspect]
     Active Substance: TRIAMCINOLONE ACETONIDE
     Indication: BACK DISORDER
     Route: 008

REACTIONS (3)
  - Toxicity to various agents [None]
  - Unevaluable event [None]
  - Off label use [None]

NARRATIVE: CASE EVENT DATE: 20110127
